FAERS Safety Report 7217397-X (Version None)
Quarter: 2011Q1

REPORT INFORMATION
  Report Type: 
  Country: None (occurrence: None)
  Receive Date: 20110110
  Receipt Date: 20101228
  Transmission Date: 20110831
  Serious: Yes (Other)
  Sender: FDA-Public Use
  Company Number: PHHY2010JP31661

PATIENT
  Age: 66 Year
  Sex: Male
  Weight: 80 kg

DRUGS (19)
  1. ADONA [Concomitant]
     Indication: PROPHYLAXIS
     Dosage: 90 MG, UNK
     Route: 048
     Dates: start: 20080814
  2. RED BLOOD CELLS, CONCENTRATED [Concomitant]
     Dosage: 2 UNITS ABOUT EVERY 10 DAYS
     Dates: start: 20080814
  3. NEORAL [Suspect]
     Indication: APLASTIC ANAEMIA
     Dosage: 50 MG, DAILY
     Route: 048
     Dates: start: 20080814
  4. OMEPRAL [Concomitant]
     Indication: PROPHYLAXIS
     Dosage: 10 MG, UNK
     Route: 048
     Dates: start: 20080814
  5. EXJADE [Suspect]
     Dosage: 1000 MG, DAILY
     Route: 048
     Dates: start: 20090209, end: 20090624
  6. EXJADE [Suspect]
     Indication: IRON OVERLOAD
     Dosage: 1000 MG, DAILY
     Route: 048
     Dates: start: 20080814, end: 20080911
  7. LASIX [Concomitant]
     Dosage: 60 MG, UNK
     Route: 048
     Dates: start: 20080814
  8. PLATELETS [Concomitant]
     Dosage: 15-20 UNITS EVERY 10 DAYS
     Dates: start: 20080814
  9. DESFERAL [Concomitant]
     Dosage: UNK
     Route: 030
     Dates: start: 20030101
  10. NU-LOTAN [Concomitant]
     Dosage: 25 MG, UNK
     Route: 048
     Dates: start: 20080814
  11. ALDACTONE [Concomitant]
     Dosage: 25 MG, UNK
     Route: 048
     Dates: start: 20080814
  12. EXJADE [Suspect]
     Dosage: 500 MG, DAILY
     Route: 048
     Dates: start: 20080912, end: 20090208
  13. ACTOS [Concomitant]
     Dosage: 15 MG, UNK
     Route: 048
     Dates: start: 20080814
  14. NORVASC [Concomitant]
     Dosage: 10 MG, UNK
     Route: 048
     Dates: start: 20080814
  15. GLYCYRON [Concomitant]
     Dosage: 6 DF, UNK
     Route: 048
     Dates: start: 20080814
  16. MAGMITT [Concomitant]
     Dosage: 2 G, UNK
  17. ZYLORIC [Concomitant]
     Dosage: 200 MG, UNK
     Route: 048
     Dates: start: 20080814
  18. MEVALOTIN [Concomitant]
     Dosage: 10 MG, UNK
     Route: 048
     Dates: start: 20080814
  19. MARZULENE [Concomitant]
     Dosage: 1.5 G, UNK
     Dates: start: 20080814

REACTIONS (2)
  - LUNG NEOPLASM MALIGNANT [None]
  - RENAL IMPAIRMENT [None]
